FAERS Safety Report 13172536 (Version 1)
Quarter: 2017Q1

REPORT INFORMATION
  Report Type: Spontaneous
  Country: US (occurrence: US)
  Receive Date: 20170131
  Receipt Date: 20170131
  Transmission Date: 20170428
  Serious: Yes (Hospitalization)
  Sender: FDA-Public Use
  Company Number: US-ACTELION-A-US2017-149084

PATIENT
  Age: 40 Year
  Sex: Female

DRUGS (2)
  1. OPSUMIT [Suspect]
     Active Substance: MACITENTAN
     Indication: PULMONARY ARTERIAL HYPERTENSION
     Dosage: 10 MG, QD
     Route: 048
     Dates: start: 20150905, end: 201612
  2. SILDENAFIL. [Concomitant]
     Active Substance: SILDENAFIL

REACTIONS (12)
  - Pneumothorax [Not Recovered/Not Resolved]
  - Swelling [Not Recovered/Not Resolved]
  - Gastrointestinal tube insertion [Unknown]
  - Dialysis [Unknown]
  - Dehydration [Recovering/Resolving]
  - Feeding disorder [Unknown]
  - Tracheostomy [Not Recovered/Not Resolved]
  - Gait disturbance [Unknown]
  - Dysphagia [Not Recovered/Not Resolved]
  - Renal failure [Recovering/Resolving]
  - Fluid retention [Not Recovered/Not Resolved]
  - Dizziness [Unknown]

NARRATIVE: CASE EVENT DATE: 201612
